FAERS Safety Report 7918916-8 (Version None)
Quarter: 2011Q4

REPORT INFORMATION
  Report Type: 
  Country: None (occurrence: None)
  Receive Date: 20111116
  Receipt Date: 20111108
  Transmission Date: 20120403
  Serious: Yes (Other)
  Sender: FDA-Public Use
  Company Number: PHEH2011US008971

PATIENT
  Sex: Female

DRUGS (1)
  1. AREDIA [Suspect]

REACTIONS (6)
  - OSTEITIS DEFORMANS [None]
  - LIPOMA [None]
  - ANAEMIA [None]
  - JOINT RANGE OF MOTION DECREASED [None]
  - SKIN CANCER [None]
  - LEUKOPENIA [None]
